FAERS Safety Report 18213072 (Version 1)
Quarter: 2020Q3

REPORT INFORMATION
  Report Type: Report from Study
  Country: US (occurrence: US)
  Receive Date: 20200831
  Receipt Date: 20200831
  Transmission Date: 20201103
  Serious: Yes (Hospitalization)
  Sender: FDA-Public Use
  Company Number: US-JNJFOC-20200844345

PATIENT
  Age: 24 Year
  Sex: Male

DRUGS (2)
  1. DURAGESIC [Suspect]
     Active Substance: FENTANYL
     Indication: PRODUCT USED FOR UNKNOWN INDICATION
     Route: 065
  2. HEROIN [Suspect]
     Active Substance: DIAMORPHINE

REACTIONS (9)
  - Road traffic accident [Unknown]
  - Splenic rupture [Unknown]
  - Hypersomnia [Unknown]
  - Insomnia [Unknown]
  - Apnoea [Unknown]
  - Nausea [Unknown]
  - Cervical vertebral fracture [Unknown]
  - Thinking abnormal [Unknown]
  - Feeling abnormal [Unknown]
